FAERS Safety Report 5681127-3 (Version None)
Quarter: 2008Q1

REPORT INFORMATION
  Report Type: 
  Country: None (occurrence: None)
  Receive Date: 20080325
  Receipt Date: 20080311
  Transmission Date: 20080703
  Serious: Yes (Death, Other)
  Sender: FDA-Public Use
  Company Number: 2008000573

PATIENT
  Age: 73 Year
  Sex: Male

DRUGS (1)
  1. TARCEVA [Suspect]
     Dosage: 150 MG, QD, ORAL
     Route: 048
     Dates: start: 20080215, end: 20080224

REACTIONS (2)
  - PLEURAL EFFUSION [None]
  - RESPIRATORY TRACT INFECTION [None]
